FAERS Safety Report 9426809 (Version 1)
Quarter: 2013Q3

REPORT INFORMATION
  Report Type: Spontaneous
  Country: US (occurrence: US)
  Receive Date: 20130730
  Receipt Date: 20130730
  Transmission Date: 20140515
  Serious: Yes (Other)
  Sender: FDA-Public Use
  Company Number: US-SANOFI-AVENTIS-2013SA031294

PATIENT
  Age: 81 Year
  Sex: Female

DRUGS (4)
  1. AMBIEN [Suspect]
     Indication: SLEEP DISORDER
     Route: 065
  2. IBUPROFEN [Suspect]
     Indication: SLEEP DISORDER
     Dosage: 1 OR 2 TABLETS AS NEEDED
     Route: 048
     Dates: start: 2013
  3. METOPROLOL [Concomitant]
     Indication: HYPERTENSION
  4. SYNTHROID [Concomitant]
     Indication: THYROID CANCER

REACTIONS (2)
  - Drug dependence [Unknown]
  - Drug ineffective [Unknown]
